FAERS Safety Report 18742013 (Version 19)
Quarter: 2025Q4

REPORT INFORMATION
  Report Type: Spontaneous
  Country: CA (occurrence: CA)
  Receive Date: 20210114
  Receipt Date: 20251231
  Transmission Date: 20260117
  Serious: Yes (Hospitalization, Disabling, Congenital Anomaly, Other)
  Sender: SANOFI AVENTIS
  Company Number: CA-SA-SAC20210112000027

PATIENT
  Age: 80 Year
  Sex: Male
  Weight: 89 kg

DRUGS (352)
  1. ASACOL [Suspect]
     Active Substance: MESALAMINE
     Indication: Product used for unknown indication
     Dosage: UNK
  2. ASACOL [Suspect]
     Active Substance: MESALAMINE
     Indication: Product used for unknown indication
     Route: 065
  3. ASACOL [Suspect]
     Active Substance: MESALAMINE
  4. ASACOL [Suspect]
     Active Substance: MESALAMINE
  5. ASACOL [Suspect]
     Active Substance: MESALAMINE
     Dosage: UNK
  6. ASACOL [Suspect]
     Active Substance: MESALAMINE
  7. ASACOL [Suspect]
     Active Substance: MESALAMINE
     Dosage: UNK
  8. ASACOL [Suspect]
     Active Substance: MESALAMINE
     Dosage: TABLET (ENTERICCOATED)
     Route: 065
  9. ASACOL [Suspect]
     Active Substance: MESALAMINE
     Dosage: TABLET (ENTERICCOATED)
     Route: 065
  10. ASACOL [Suspect]
     Active Substance: MESALAMINE
  11. ASACOL [Suspect]
     Active Substance: MESALAMINE
     Dosage: UNK UNK, UNKNOWN FREQ.
     Route: 065
  12. ASACOL [Suspect]
     Active Substance: MESALAMINE
     Dosage: TABLET (ENTERICCOATED)
  13. ASACOL [Suspect]
     Active Substance: MESALAMINE
  14. ASACOL [Suspect]
     Active Substance: MESALAMINE
  15. ASACOL [Suspect]
     Active Substance: MESALAMINE
  16. TAMSULOSIN HYDROCHLORIDE [Suspect]
     Active Substance: TAMSULOSIN HYDROCHLORIDE
     Dosage: UNK
     Route: 065
  17. INFLUENZA VIRUS VACCINE [Suspect]
     Active Substance: INFLUENZA VIRUS VACCINE
     Indication: Immunisation
     Route: 051
  18. INFLUENZA VIRUS VACCINE [Suspect]
     Active Substance: INFLUENZA VIRUS VACCINE
     Indication: Prophylaxis
  19. INFLUENZA VIRUS VACCINE [Suspect]
     Active Substance: INFLUENZA VIRUS VACCINE
     Indication: Immunisation
  20. INFLUENZA VIRUS VACCINE [Suspect]
     Active Substance: INFLUENZA VIRUS VACCINE
     Route: 065
  21. INFLUENZA VIRUS VACCINE [Suspect]
     Active Substance: INFLUENZA VIRUS VACCINE
  22. INFLUENZA VIRUS VACCINE [Suspect]
     Active Substance: INFLUENZA VIRUS VACCINE
     Route: 065
  23. INFLUENZA VIRUS VACCINE [Suspect]
     Active Substance: INFLUENZA VIRUS VACCINE
  24. INFLUENZA VIRUS VACCINE [Suspect]
     Active Substance: INFLUENZA VIRUS VACCINE
  25. INFLUENZA VIRUS VACCINE [Suspect]
     Active Substance: INFLUENZA VIRUS VACCINE
  26. INFLUENZA VIRUS VACCINE [Suspect]
     Active Substance: INFLUENZA VIRUS VACCINE
  27. INFLUENZA VIRUS VACCINE [Suspect]
     Active Substance: INFLUENZA VIRUS VACCINE
     Route: 051
  28. INFLUENZA VIRUS VACCINE [Suspect]
     Active Substance: INFLUENZA VIRUS VACCINE
  29. PNEUMOCOCCAL VACCINE NOS [Suspect]
     Active Substance: PNEUMOCOCCAL VACCINE
     Indication: Immunisation
  30. PNEUMOCOCCAL VACCINE NOS [Suspect]
     Active Substance: PNEUMOCOCCAL VACCINE
     Indication: Prophylaxis
  31. PNEUMOCOCCAL VACCINE NOS [Suspect]
     Active Substance: PNEUMOCOCCAL VACCINE
     Indication: Immunisation
  32. PNEUMOCOCCAL VACCINE NOS [Suspect]
     Active Substance: PNEUMOCOCCAL VACCINE
  33. PNEUMOCOCCAL VACCINE NOS [Suspect]
     Active Substance: PNEUMOCOCCAL VACCINE
     Route: 065
  34. PNEUMOCOCCAL VACCINE NOS [Suspect]
     Active Substance: PNEUMOCOCCAL VACCINE
     Route: 065
  35. PNEUMOCOCCAL VACCINE NOS [Suspect]
     Active Substance: PNEUMOCOCCAL VACCINE
  36. PNEUMOCOCCAL VACCINE NOS [Suspect]
     Active Substance: PNEUMOCOCCAL VACCINE
     Route: 065
  37. PNEUMOCOCCAL VACCINE NOS [Suspect]
     Active Substance: PNEUMOCOCCAL VACCINE
  38. PNEUMOCOCCAL VACCINE NOS [Suspect]
     Active Substance: PNEUMOCOCCAL VACCINE
  39. PNEUMOCOCCAL VACCINE NOS [Suspect]
     Active Substance: PNEUMOCOCCAL VACCINE
  40. PNEUMOCOCCAL VACCINE NOS [Suspect]
     Active Substance: PNEUMOCOCCAL VACCINE
  41. LEVOFLOXACIN [Suspect]
     Active Substance: LEVOFLOXACIN
     Indication: Product used for unknown indication
     Dosage: UNK
  42. LEVOFLOXACIN [Suspect]
     Active Substance: LEVOFLOXACIN
     Indication: Prophylaxis
  43. LEVOFLOXACIN [Suspect]
     Active Substance: LEVOFLOXACIN
  44. LEVOFLOXACIN [Suspect]
     Active Substance: LEVOFLOXACIN
     Dosage: HEMIHYDRATE
  45. LEVOFLOXACIN [Suspect]
     Active Substance: LEVOFLOXACIN
     Route: 065
  46. LEVOFLOXACIN [Suspect]
     Active Substance: LEVOFLOXACIN
     Dosage: NOT SPECIFIED
     Route: 065
  47. LEVOFLOXACIN [Suspect]
     Active Substance: LEVOFLOXACIN
     Dosage: NOT SPECIFIED
  48. LEVOFLOXACIN [Suspect]
     Active Substance: LEVOFLOXACIN
     Dosage: NOT SPECIFIED
  49. LEVOFLOXACIN [Suspect]
     Active Substance: LEVOFLOXACIN
     Dosage: NOT SPECIFIED
  50. LEVOFLOXACIN [Suspect]
     Active Substance: LEVOFLOXACIN
     Dosage: NOT SPECIFIED
     Route: 065
  51. LEVOFLOXACIN [Suspect]
     Active Substance: LEVOFLOXACIN
     Dosage: NOT SPECIFIED
  52. LEVOFLOXACIN [Suspect]
     Active Substance: LEVOFLOXACIN
     Dosage: NOT SPECIFIED
  53. LEVOFLOXACIN [Suspect]
     Active Substance: LEVOFLOXACIN
     Dosage: NOT SPECIFIED
  54. LEVOFLOXACIN [Suspect]
     Active Substance: LEVOFLOXACIN
  55. LEVOFLOXACIN [Suspect]
     Active Substance: LEVOFLOXACIN
     Dosage: UNK UNK, UNKNOWN FREQ.
     Route: 065
  56. LEVOFLOXACIN [Suspect]
     Active Substance: LEVOFLOXACIN
     Dosage: NOT SPECIFIED
  57. LEVOFLOXACIN [Suspect]
     Active Substance: LEVOFLOXACIN
     Dosage: NOT SPECIFIED
  58. LEVOFLOXACIN [Suspect]
     Active Substance: LEVOFLOXACIN
     Dosage: NOT SPECIFIED
  59. LEVOFLOXACIN [Suspect]
     Active Substance: LEVOFLOXACIN
     Dosage: NOT SPECIFIED
  60. LEVOFLOXACIN [Suspect]
     Active Substance: LEVOFLOXACIN
  61. LEVOFLOXACIN [Suspect]
     Active Substance: LEVOFLOXACIN
  62. ASPIRIN [Suspect]
     Active Substance: ASPIRIN
     Indication: Product used for unknown indication
     Dosage: UNK
  63. BUDESONIDE [Suspect]
     Active Substance: BUDESONIDE
     Indication: Asthma
     Dosage: 2 DF, QD
     Route: 065
  64. BUDESONIDE [Suspect]
     Active Substance: BUDESONIDE
     Dosage: 4 DF, QD
     Route: 065
  65. BUDESONIDE [Suspect]
     Active Substance: BUDESONIDE
     Dosage: 1 DF, QD
  66. BUDESONIDE [Suspect]
     Active Substance: BUDESONIDE
     Dosage: 2 DF, Q12H
     Route: 065
  67. BUDESONIDE [Suspect]
     Active Substance: BUDESONIDE
  68. BUDESONIDE [Suspect]
     Active Substance: BUDESONIDE
     Route: 055
  69. BUDESONIDE [Suspect]
     Active Substance: BUDESONIDE
  70. BUDESONIDE [Suspect]
     Active Substance: BUDESONIDE
  71. ACETYLCYSTEINE [Suspect]
     Active Substance: ACETYLCYSTEINE
     Indication: Product used for unknown indication
     Dosage: UNK
     Route: 055
  72. ACETYLCYSTEINE [Suspect]
     Active Substance: ACETYLCYSTEINE
     Indication: Product used for unknown indication
     Route: 065
  73. ACETYLCYSTEINE [Suspect]
     Active Substance: ACETYLCYSTEINE
     Route: 065
  74. ACETYLCYSTEINE [Suspect]
     Active Substance: ACETYLCYSTEINE
     Route: 065
  75. ACETYLCYSTEINE [Suspect]
     Active Substance: ACETYLCYSTEINE
     Route: 065
  76. ACETYLCYSTEINE [Suspect]
     Active Substance: ACETYLCYSTEINE
     Route: 065
  77. ACETYLCYSTEINE [Suspect]
     Active Substance: ACETYLCYSTEINE
  78. ACETYLCYSTEINE [Suspect]
     Active Substance: ACETYLCYSTEINE
     Dosage: UNK
  79. ACETYLCYSTEINE [Suspect]
     Active Substance: ACETYLCYSTEINE
  80. ACETYLCYSTEINE [Suspect]
     Active Substance: ACETYLCYSTEINE
  81. ACETYLCYSTEINE [Suspect]
     Active Substance: ACETYLCYSTEINE
     Dosage: UNK
  82. ACETYLCYSTEINE [Suspect]
     Active Substance: ACETYLCYSTEINE
     Dosage: UNK
  83. ACETYLCYSTEINE [Suspect]
     Active Substance: ACETYLCYSTEINE
     Route: 065
  84. ACETYLCYSTEINE [Suspect]
     Active Substance: ACETYLCYSTEINE
     Route: 065
  85. ACETYLCYSTEINE [Suspect]
     Active Substance: ACETYLCYSTEINE
     Route: 055
  86. ACETYLCYSTEINE [Suspect]
     Active Substance: ACETYLCYSTEINE
  87. ACETYLCYSTEINE [Suspect]
     Active Substance: ACETYLCYSTEINE
  88. ACETYLCYSTEINE [Suspect]
     Active Substance: ACETYLCYSTEINE
  89. ACETYLCYSTEINE [Suspect]
     Active Substance: ACETYLCYSTEINE
     Dosage: UNK UNK, UNKNOWN FREQ.
     Route: 065
  90. ACETYLCYSTEINE [Suspect]
     Active Substance: ACETYLCYSTEINE
  91. ACETYLCYSTEINE [Suspect]
     Active Substance: ACETYLCYSTEINE
  92. ACETYLCYSTEINE [Suspect]
     Active Substance: ACETYLCYSTEINE
  93. ACETYLCYSTEINE [Suspect]
     Active Substance: ACETYLCYSTEINE
     Route: 055
  94. ACETYLCYSTEINE [Suspect]
     Active Substance: ACETYLCYSTEINE
  95. MESALAMINE [Suspect]
     Active Substance: MESALAMINE
     Indication: Product used for unknown indication
     Route: 065
  96. MESALAMINE [Suspect]
     Active Substance: MESALAMINE
     Route: 065
  97. MESALAMINE [Suspect]
     Active Substance: MESALAMINE
  98. MESALAMINE [Suspect]
     Active Substance: MESALAMINE
  99. MESALAMINE [Suspect]
     Active Substance: MESALAMINE
     Dosage: UNK
     Route: 065
  100. MESALAMINE [Suspect]
     Active Substance: MESALAMINE
     Route: 065
  101. MESALAMINE [Suspect]
     Active Substance: MESALAMINE
  102. MESALAMINE [Suspect]
     Active Substance: MESALAMINE
  103. AMLODIPINE BESYLATE [Suspect]
     Active Substance: AMLODIPINE BESYLATE
     Indication: Product used for unknown indication
     Dosage: UNK
  104. AMLODIPINE BESYLATE [Suspect]
     Active Substance: AMLODIPINE BESYLATE
     Indication: Product used for unknown indication
     Dosage: UNK
  105. AMLODIPINE BESYLATE [Suspect]
     Active Substance: AMLODIPINE BESYLATE
     Route: 065
  106. AMLODIPINE BESYLATE [Suspect]
     Active Substance: AMLODIPINE BESYLATE
     Route: 065
  107. AMLODIPINE BESYLATE [Suspect]
     Active Substance: AMLODIPINE BESYLATE
     Dosage: UNK UNK, UNKNOWN FREQ.
     Route: 065
  108. AMLODIPINE BESYLATE [Suspect]
     Active Substance: AMLODIPINE BESYLATE
  109. AMLODIPINE BESYLATE [Suspect]
     Active Substance: AMLODIPINE BESYLATE
  110. AZITHROMYCIN [Suspect]
     Active Substance: AZITHROMYCIN
     Indication: Product used for unknown indication
     Dosage: UNK
  111. AZITHROMYCIN [Suspect]
     Active Substance: AZITHROMYCIN
     Dosage: UNK
  112. AZITHROMYCIN [Suspect]
     Active Substance: AZITHROMYCIN
  113. AZITHROMYCIN [Suspect]
     Active Substance: AZITHROMYCIN
  114. AZITHROMYCIN [Suspect]
     Active Substance: AZITHROMYCIN
     Dosage: UNK
  115. AZITHROMYCIN [Suspect]
     Active Substance: AZITHROMYCIN
  116. AZITHROMYCIN [Suspect]
     Active Substance: AZITHROMYCIN
  117. AZITHROMYCIN [Suspect]
     Active Substance: AZITHROMYCIN
  118. AZITHROMYCIN [Suspect]
     Active Substance: AZITHROMYCIN
     Dosage: UNK
  119. AZITHROMYCIN [Suspect]
     Active Substance: AZITHROMYCIN
     Dosage: PMS
     Route: 065
  120. AZITHROMYCIN [Suspect]
     Active Substance: AZITHROMYCIN
     Dosage: PMS
  121. AZITHROMYCIN [Suspect]
     Active Substance: AZITHROMYCIN
     Dosage: NOT SPECIFIED
  122. AZITHROMYCIN [Suspect]
     Active Substance: AZITHROMYCIN
     Dosage: PMS
     Route: 065
  123. AZITHROMYCIN [Suspect]
     Active Substance: AZITHROMYCIN
     Dosage: PMS
  124. AZITHROMYCIN [Suspect]
     Active Substance: AZITHROMYCIN
     Dosage: NOT SPECIFIED
  125. AZITHROMYCIN [Suspect]
     Active Substance: AZITHROMYCIN
  126. AZITHROMYCIN [Suspect]
     Active Substance: AZITHROMYCIN
     Dosage: UNK UNK, UNKNOWN FREQ.
     Route: 065
  127. AZITHROMYCIN [Suspect]
     Active Substance: AZITHROMYCIN
     Dosage: PMS
  128. AZITHROMYCIN [Suspect]
     Active Substance: AZITHROMYCIN
     Dosage: PMS
  129. AZITHROMYCIN [Suspect]
     Active Substance: AZITHROMYCIN
     Dosage: NOT SPECIFIED
  130. AZITHROMYCIN [Suspect]
     Active Substance: AZITHROMYCIN
  131. AZITHROMYCIN [Suspect]
     Active Substance: AZITHROMYCIN
  132. BUDESONIDE\FORMOTEROL FUMARATE [Suspect]
     Active Substance: BUDESONIDE\FORMOTEROL FUMARATE
     Indication: Asthma
     Dosage: 2 DF, BID
  133. BUDESONIDE\FORMOTEROL FUMARATE [Suspect]
     Active Substance: BUDESONIDE\FORMOTEROL FUMARATE
     Dosage: 1 DF, QD
     Route: 055
  134. BUDESONIDE\FORMOTEROL FUMARATE [Suspect]
     Active Substance: BUDESONIDE\FORMOTEROL FUMARATE
     Dosage: 2 DF, QD
  135. BUDESONIDE\FORMOTEROL FUMARATE [Suspect]
     Active Substance: BUDESONIDE\FORMOTEROL FUMARATE
     Dosage: 4 DF
  136. BUDESONIDE\FORMOTEROL FUMARATE [Suspect]
     Active Substance: BUDESONIDE\FORMOTEROL FUMARATE
     Dosage: 1 DF
     Route: 055
  137. CICLESONIDE [Suspect]
     Active Substance: CICLESONIDE
     Indication: Product used for unknown indication
     Dosage: UNK
     Route: 055
  138. DOXYCYCLINE [Suspect]
     Active Substance: DOXYCYCLINE
     Indication: Product used for unknown indication
     Dosage: UNK
  139. DOXYCYCLINE [Suspect]
     Active Substance: DOXYCYCLINE
  140. DOXYCYCLINE [Suspect]
     Active Substance: DOXYCYCLINE
     Dosage: UNK
  141. DOXYCYCLINE [Suspect]
     Active Substance: DOXYCYCLINE
  142. DOXYCYCLINE [Suspect]
     Active Substance: DOXYCYCLINE
  143. DOXYCYCLINE [Suspect]
     Active Substance: DOXYCYCLINE
  144. DOXYCYCLINE [Suspect]
     Active Substance: DOXYCYCLINE
  145. DOXYCYCLINE [Suspect]
     Active Substance: DOXYCYCLINE
     Route: 065
  146. DOXYCYCLINE [Suspect]
     Active Substance: DOXYCYCLINE
     Route: 065
  147. DOXYCYCLINE [Suspect]
     Active Substance: DOXYCYCLINE
  148. DOXYCYCLINE [Suspect]
     Active Substance: DOXYCYCLINE
  149. DOXYCYCLINE [Suspect]
     Active Substance: DOXYCYCLINE
     Dosage: UNK UNK, UNKNOWN FREQ.
     Route: 065
  150. DOXYCYCLINE [Suspect]
     Active Substance: DOXYCYCLINE
     Dosage: NOT SPECIFIED
  151. DOXYCYCLINE [Suspect]
     Active Substance: DOXYCYCLINE
     Dosage: NOT SPECIFIED
  152. DOXYCYCLINE [Suspect]
     Active Substance: DOXYCYCLINE
  153. DOXYCYCLINE [Suspect]
     Active Substance: DOXYCYCLINE
  154. MELATONIN [Suspect]
     Active Substance: MELATONIN
     Indication: Product used for unknown indication
     Dosage: UNK
  155. MELATONIN [Suspect]
     Active Substance: MELATONIN
     Dosage: UNK
  156. MELATONIN [Suspect]
     Active Substance: MELATONIN
  157. MELATONIN [Suspect]
     Active Substance: MELATONIN
  158. MELATONIN [Suspect]
     Active Substance: MELATONIN
     Dosage: UNK
  159. MELATONIN [Suspect]
     Active Substance: MELATONIN
  160. MELATONIN [Suspect]
     Active Substance: MELATONIN
  161. MELATONIN [Suspect]
     Active Substance: MELATONIN
     Dosage: UNK
  162. MELATONIN [Suspect]
     Active Substance: MELATONIN
     Dosage: UNK
  163. MELATONIN [Suspect]
     Active Substance: MELATONIN
     Route: 065
  164. MELATONIN [Suspect]
     Active Substance: MELATONIN
     Dosage: NOT SPECIFIED
  165. MELATONIN [Suspect]
     Active Substance: MELATONIN
     Route: 065
  166. MELATONIN [Suspect]
     Active Substance: MELATONIN
     Dosage: NOT SPECIFIED
  167. MELATONIN [Suspect]
     Active Substance: MELATONIN
  168. MELATONIN [Suspect]
     Active Substance: MELATONIN
     Dosage: UNK UNK, UNKNOWN FREQ.
     Route: 065
  169. MELATONIN [Suspect]
     Active Substance: MELATONIN
  170. MELATONIN [Suspect]
     Active Substance: MELATONIN
     Dosage: NOT SPECIFIED
  171. MELATONIN [Suspect]
     Active Substance: MELATONIN
  172. MELATONIN [Suspect]
     Active Substance: MELATONIN
  173. NAPROXEN [Suspect]
     Active Substance: NAPROXEN
     Indication: Product used for unknown indication
     Dosage: UNK
  174. NAPROXEN [Suspect]
     Active Substance: NAPROXEN
  175. NAPROXEN [Suspect]
     Active Substance: NAPROXEN
     Dosage: NOT SPECIFIED
     Route: 065
  176. NAPROXEN [Suspect]
     Active Substance: NAPROXEN
  177. NAPROXEN [Suspect]
     Active Substance: NAPROXEN
  178. NAPROXEN [Suspect]
     Active Substance: NAPROXEN
     Dosage: UNK
  179. NAPROXEN [Suspect]
     Active Substance: NAPROXEN
     Dosage: UNK
  180. NAPROXEN [Suspect]
     Active Substance: NAPROXEN
  181. NAPROXEN [Suspect]
     Active Substance: NAPROXEN
     Dosage: UNK
  182. NAPROXEN [Suspect]
     Active Substance: NAPROXEN
  183. NAPROXEN [Suspect]
     Active Substance: NAPROXEN
  184. NAPROXEN [Suspect]
     Active Substance: NAPROXEN
     Dosage: UNK
  185. NAPROXEN [Suspect]
     Active Substance: NAPROXEN
     Dosage: NOT SPECIFIED
     Route: 065
  186. NAPROXEN [Suspect]
     Active Substance: NAPROXEN
     Dosage: NOT SPECIFIED
  187. NAPROXEN [Suspect]
     Active Substance: NAPROXEN
     Dosage: NOT SPECIFIED
     Route: 065
  188. NAPROXEN [Suspect]
     Active Substance: NAPROXEN
     Dosage: NOT SPECIFIED
  189. NAPROXEN [Suspect]
     Active Substance: NAPROXEN
  190. NAPROXEN [Suspect]
     Active Substance: NAPROXEN
     Dosage: UNK UNK, UNKNOWN FREQ.
     Route: 065
  191. NAPROXEN [Suspect]
     Active Substance: NAPROXEN
     Dosage: NOT SPECIFIED
  192. NAPROXEN [Suspect]
     Active Substance: NAPROXEN
     Dosage: NOT SPECIFIED
  193. NAPROXEN [Suspect]
     Active Substance: NAPROXEN
  194. NAPROXEN [Suspect]
     Active Substance: NAPROXEN
  195. NAPROXEN SODIUM [Suspect]
     Active Substance: NAPROXEN SODIUM
     Indication: Product used for unknown indication
     Dosage: UNK
  196. NAPROXEN SODIUM [Suspect]
     Active Substance: NAPROXEN SODIUM
     Dosage: UNK
  197. NAPROXEN SODIUM [Suspect]
     Active Substance: NAPROXEN SODIUM
     Dosage: NOT SPECIFIED
     Route: 065
  198. NAPROXEN SODIUM [Suspect]
     Active Substance: NAPROXEN SODIUM
  199. NAPROXEN SODIUM [Suspect]
     Active Substance: NAPROXEN SODIUM
     Dosage: UNK UNK, UNKNOWN FREQ.
     Route: 065
  200. NAPROXEN SODIUM [Suspect]
     Active Substance: NAPROXEN SODIUM
     Dosage: NOT SPECIFIED
  201. NAPROXEN SODIUM [Suspect]
     Active Substance: NAPROXEN SODIUM
  202. PREGABALIN [Suspect]
     Active Substance: PREGABALIN
     Indication: Product used for unknown indication
     Dosage: UNK
  203. PREGABALIN [Suspect]
     Active Substance: PREGABALIN
  204. PREGABALIN [Suspect]
     Active Substance: PREGABALIN
     Dosage: UNK
  205. PREGABALIN [Suspect]
     Active Substance: PREGABALIN
  206. PREGABALIN [Suspect]
     Active Substance: PREGABALIN
     Dosage: UNK
  207. PREGABALIN [Suspect]
     Active Substance: PREGABALIN
     Route: 065
  208. PREGABALIN [Suspect]
     Active Substance: PREGABALIN
     Route: 065
  209. PREGABALIN [Suspect]
     Active Substance: PREGABALIN
  210. PREGABALIN [Suspect]
     Active Substance: PREGABALIN
     Dosage: UNK UNK, UNKNOWN FREQ.
     Route: 065
  211. PREGABALIN [Suspect]
     Active Substance: PREGABALIN
  212. PREGABALIN [Suspect]
     Active Substance: PREGABALIN
  213. PREGABALIN [Suspect]
     Active Substance: PREGABALIN
  214. PREGABALIN [Suspect]
     Active Substance: PREGABALIN
  215. PREDNISONE [Suspect]
     Active Substance: PREDNISONE
     Indication: Asthma
     Dosage: UNK
  216. PREDNISONE [Suspect]
     Active Substance: PREDNISONE
     Indication: Product used for unknown indication
  217. PREDNISONE [Suspect]
     Active Substance: PREDNISONE
     Dosage: ONGOING
  218. PREDNISONE [Suspect]
     Active Substance: PREDNISONE
  219. PREDNISONE [Suspect]
     Active Substance: PREDNISONE
     Dosage: ONGOING
  220. PREDNISONE [Suspect]
     Active Substance: PREDNISONE
     Dosage: UNK
  221. PREDNISONE [Suspect]
     Active Substance: PREDNISONE
     Dosage: UNK
  222. PREDNISONE [Suspect]
     Active Substance: PREDNISONE
     Dosage: NOT SPECIFIED
     Route: 065
  223. PREDNISONE [Suspect]
     Active Substance: PREDNISONE
     Dosage: NOT SPECIFIED
     Route: 065
  224. PREDNISONE [Suspect]
     Active Substance: PREDNISONE
  225. PREDNISONE [Suspect]
     Active Substance: PREDNISONE
     Dosage: UNK UNK, UNKNOWN FREQ.
     Route: 065
  226. PREDNISONE [Suspect]
     Active Substance: PREDNISONE
     Dosage: NOT SPECIFIED
  227. PREDNISONE [Suspect]
     Active Substance: PREDNISONE
  228. PREDNISONE [Suspect]
     Active Substance: PREDNISONE
  229. PANTOPRAZOLE [Suspect]
     Active Substance: PANTOPRAZOLE
     Indication: Product used for unknown indication
     Dosage: UNK
  230. PANTOPRAZOLE [Suspect]
     Active Substance: PANTOPRAZOLE
     Indication: Product used for unknown indication
     Route: 065
  231. PANTOPRAZOLE [Suspect]
     Active Substance: PANTOPRAZOLE
     Dosage: UNK
  232. PANTOPRAZOLE [Suspect]
     Active Substance: PANTOPRAZOLE
     Dosage: UNK
  233. PANTOPRAZOLE [Suspect]
     Active Substance: PANTOPRAZOLE
     Dosage: UNK
  234. PANTOPRAZOLE [Suspect]
     Active Substance: PANTOPRAZOLE
     Dosage: NOT SPECIFIED
     Route: 065
  235. PANTOPRAZOLE [Suspect]
     Active Substance: PANTOPRAZOLE
     Dosage: NOT SPECIFIED
     Route: 065
  236. PANTOPRAZOLE [Suspect]
     Active Substance: PANTOPRAZOLE
  237. PANTOPRAZOLE [Suspect]
     Active Substance: PANTOPRAZOLE
     Dosage: UNK UNK, UNKNOWN FREQ.
     Route: 065
  238. PANTOPRAZOLE [Suspect]
     Active Substance: PANTOPRAZOLE
     Dosage: NOT SPECIFIED
  239. PANTOPRAZOLE [Suspect]
     Active Substance: PANTOPRAZOLE
  240. PANTOPRAZOLE [Suspect]
     Active Substance: PANTOPRAZOLE
  241. PANTOPRAZOLE SODIUM [Suspect]
     Active Substance: PANTOPRAZOLE SODIUM
     Indication: Product used for unknown indication
     Dosage: UNK
  242. PANTOPRAZOLE SODIUM [Suspect]
     Active Substance: PANTOPRAZOLE SODIUM
     Dosage: ANHYDROUS
  243. PANTOPRAZOLE SODIUM [Suspect]
     Active Substance: PANTOPRAZOLE SODIUM
     Dosage: UNK UNK, UNKNOWN FREQ.
     Route: 065
  244. PANTOPRAZOLE SODIUM [Suspect]
     Active Substance: PANTOPRAZOLE SODIUM
     Dosage: ANHYDROUS
  245. PANTOPRAZOLE SODIUM [Suspect]
     Active Substance: PANTOPRAZOLE SODIUM
     Dosage: ANHYDROUS
  246. RAMIPRIL [Suspect]
     Active Substance: RAMIPRIL
     Indication: Asthma
     Dosage: UNK
     Route: 048
  247. RAMIPRIL [Suspect]
     Active Substance: RAMIPRIL
     Indication: Prophylaxis
     Dosage: UNK
  248. RAMIPRIL [Suspect]
     Active Substance: RAMIPRIL
     Route: 065
  249. RAMIPRIL [Suspect]
     Active Substance: RAMIPRIL
     Dosage: UNK
     Route: 048
  250. RAMIPRIL [Suspect]
     Active Substance: RAMIPRIL
     Route: 048
  251. RAMIPRIL [Suspect]
     Active Substance: RAMIPRIL
     Route: 048
  252. RAMIPRIL [Suspect]
     Active Substance: RAMIPRIL
     Route: 048
  253. RAMIPRIL [Suspect]
     Active Substance: RAMIPRIL
     Dosage: UNK
     Route: 048
  254. RAMIPRIL [Suspect]
     Active Substance: RAMIPRIL
     Dosage: UNK
     Route: 048
  255. RAMIPRIL [Suspect]
     Active Substance: RAMIPRIL
     Dosage: NOT SPECIFIED
     Route: 065
  256. RAMIPRIL [Suspect]
     Active Substance: RAMIPRIL
     Dosage: NOT SPECIFIED
  257. RAMIPRIL [Suspect]
     Active Substance: RAMIPRIL
     Dosage: NOT SPECIFIED
  258. RAMIPRIL [Suspect]
     Active Substance: RAMIPRIL
     Dosage: NOT SPECIFIED
  259. RAMIPRIL [Suspect]
     Active Substance: RAMIPRIL
     Route: 048
  260. RAMIPRIL [Suspect]
     Active Substance: RAMIPRIL
     Dosage: NOT SPECIFIED
     Route: 065
  261. RAMIPRIL [Suspect]
     Active Substance: RAMIPRIL
     Dosage: NOT SPECIFIED
  262. RAMIPRIL [Suspect]
     Active Substance: RAMIPRIL
     Dosage: NOT SPECIFIED
  263. RAMIPRIL [Suspect]
     Active Substance: RAMIPRIL
     Dosage: NOT SPECIFIED
  264. RAMIPRIL [Suspect]
     Active Substance: RAMIPRIL
     Route: 048
  265. RAMIPRIL [Suspect]
     Active Substance: RAMIPRIL
     Route: 048
  266. RAMIPRIL [Suspect]
     Active Substance: RAMIPRIL
     Dosage: NOT SPECIFIED
  267. RAMIPRIL [Suspect]
     Active Substance: RAMIPRIL
  268. RAMIPRIL [Suspect]
     Active Substance: RAMIPRIL
     Dosage: NOT SPECIFIED
  269. RAMIPRIL [Suspect]
     Active Substance: RAMIPRIL
     Dosage: NOT SPECIFIED
  270. RAMIPRIL [Suspect]
     Active Substance: RAMIPRIL
     Dosage: NOT SPECIFIED
  271. RAMIPRIL [Suspect]
     Active Substance: RAMIPRIL
     Route: 048
  272. RAMIPRIL [Suspect]
     Active Substance: RAMIPRIL
     Dosage: UNK UNK, UNKNOWN FREQ.
     Route: 065
  273. RAMIPRIL [Suspect]
     Active Substance: RAMIPRIL
     Dosage: UNK UNK, UNKNOWN FREQ.
     Route: 065
  274. RAMIPRIL [Suspect]
     Active Substance: RAMIPRIL
     Dosage: NOT SPECIFIED
     Route: 065
  275. RAMIPRIL [Suspect]
     Active Substance: RAMIPRIL
  276. RAMIPRIL [Suspect]
     Active Substance: RAMIPRIL
     Dosage: NOT SPECIFIED
  277. RAMIPRIL [Suspect]
     Active Substance: RAMIPRIL
     Dosage: NOT SPECIFIED
  278. RAMIPRIL [Suspect]
     Active Substance: RAMIPRIL
     Dosage: NOT SPECIFIED
  279. RAMIPRIL [Suspect]
     Active Substance: RAMIPRIL
     Route: 048
  280. RAMIPRIL [Suspect]
     Active Substance: RAMIPRIL
     Route: 048
  281. RAMIPRIL [Suspect]
     Active Substance: RAMIPRIL
     Route: 048
  282. ROSUVASTATIN [Suspect]
     Active Substance: ROSUVASTATIN
     Indication: Asthma
     Dosage: 1 DF, Q12H
     Route: 048
  283. ROSUVASTATIN [Suspect]
     Active Substance: ROSUVASTATIN
     Route: 065
  284. ROSUVASTATIN [Suspect]
     Active Substance: ROSUVASTATIN
     Route: 065
  285. ROSUVASTATIN [Suspect]
     Active Substance: ROSUVASTATIN
  286. ROSUVASTATIN [Suspect]
     Active Substance: ROSUVASTATIN
  287. ROSUVASTATIN [Suspect]
     Active Substance: ROSUVASTATIN
  288. ROSUVASTATIN [Suspect]
     Active Substance: ROSUVASTATIN
  289. ROSUVASTATIN CALCIUM [Suspect]
     Active Substance: ROSUVASTATIN CALCIUM
     Indication: Asthma
     Dosage: UNK
     Route: 048
  290. ROSUVASTATIN CALCIUM [Suspect]
     Active Substance: ROSUVASTATIN CALCIUM
     Indication: Product used for unknown indication
     Route: 048
  291. ROSUVASTATIN CALCIUM [Suspect]
     Active Substance: ROSUVASTATIN CALCIUM
     Indication: Product used for unknown indication
     Dosage: UNK
     Route: 048
  292. ROSUVASTATIN CALCIUM [Suspect]
     Active Substance: ROSUVASTATIN CALCIUM
     Route: 048
  293. ROSUVASTATIN CALCIUM [Suspect]
     Active Substance: ROSUVASTATIN CALCIUM
     Route: 048
  294. ROSUVASTATIN CALCIUM [Suspect]
     Active Substance: ROSUVASTATIN CALCIUM
     Route: 048
  295. ROSUVASTATIN CALCIUM [Suspect]
     Active Substance: ROSUVASTATIN CALCIUM
     Dosage: UNK
     Route: 048
  296. ROSUVASTATIN CALCIUM [Suspect]
     Active Substance: ROSUVASTATIN CALCIUM
     Route: 065
  297. ROSUVASTATIN CALCIUM [Suspect]
     Active Substance: ROSUVASTATIN CALCIUM
     Route: 048
  298. ROSUVASTATIN CALCIUM [Suspect]
     Active Substance: ROSUVASTATIN CALCIUM
     Route: 065
  299. ROSUVASTATIN CALCIUM [Suspect]
     Active Substance: ROSUVASTATIN CALCIUM
     Route: 048
  300. ROSUVASTATIN CALCIUM [Suspect]
     Active Substance: ROSUVASTATIN CALCIUM
     Route: 048
  301. ROSUVASTATIN CALCIUM [Suspect]
     Active Substance: ROSUVASTATIN CALCIUM
     Dosage: UNK
     Route: 065
  302. ROSUVASTATIN CALCIUM [Suspect]
     Active Substance: ROSUVASTATIN CALCIUM
  303. ROSUVASTATIN CALCIUM [Suspect]
     Active Substance: ROSUVASTATIN CALCIUM
     Route: 048
  304. ROSUVASTATIN CALCIUM [Suspect]
     Active Substance: ROSUVASTATIN CALCIUM
     Route: 048
  305. ROSUVASTATIN CALCIUM [Suspect]
     Active Substance: ROSUVASTATIN CALCIUM
     Route: 048
  306. ROSUVASTATIN CALCIUM [Suspect]
     Active Substance: ROSUVASTATIN CALCIUM
     Route: 048
  307. ALBUTEROL SULFATE [Suspect]
     Active Substance: ALBUTEROL SULFATE
     Indication: Asthma
     Dosage: UNK
  308. ALBUTEROL SULFATE [Suspect]
     Active Substance: ALBUTEROL SULFATE
     Indication: Prophylaxis
     Dosage: UNK PUFF(S), PM, 100 MCG
  309. ALBUTEROL SULFATE [Suspect]
     Active Substance: ALBUTEROL SULFATE
     Dosage: UNK PUFF(S), PM- ONGOING
  310. ALBUTEROL SULFATE [Suspect]
     Active Substance: ALBUTEROL SULFATE
     Dosage: UNK PUFF(S), PM, 100 MCG
  311. ALBUTEROL SULFATE [Suspect]
     Active Substance: ALBUTEROL SULFATE
     Dosage: UNK
  312. ALBUTEROL SULFATE [Suspect]
     Active Substance: ALBUTEROL SULFATE
     Route: 065
  313. ALBUTEROL SULFATE [Suspect]
     Active Substance: ALBUTEROL SULFATE
  314. ALBUTEROL SULFATE [Suspect]
     Active Substance: ALBUTEROL SULFATE
     Route: 065
  315. ALBUTEROL SULFATE [Suspect]
     Active Substance: ALBUTEROL SULFATE
  316. ALBUTEROL SULFATE [Suspect]
     Active Substance: ALBUTEROL SULFATE
  317. ALBUTEROL SULFATE [Suspect]
     Active Substance: ALBUTEROL SULFATE
     Dosage: METERED-DOSE (AEROSOL)
  318. ALBUTEROL SULFATE [Suspect]
     Active Substance: ALBUTEROL SULFATE
  319. ALBUTEROL SULFATE [Suspect]
     Active Substance: ALBUTEROL SULFATE
     Dosage: UNK UNK, UNKNOWN FREQ.
     Route: 065
  320. ALBUTEROL SULFATE [Suspect]
     Active Substance: ALBUTEROL SULFATE
     Dosage: METERED-DOSE (AEROSOL)
     Route: 065
  321. ALBUTEROL SULFATE [Suspect]
     Active Substance: ALBUTEROL SULFATE
  322. ALBUTEROL SULFATE [Suspect]
     Active Substance: ALBUTEROL SULFATE
  323. ALBUTEROL SULFATE [Suspect]
     Active Substance: ALBUTEROL SULFATE
  324. DOXYCYCLINE HYDROCHLORIDE [Suspect]
     Active Substance: DOXYCYCLINE HYDROCHLORIDE
     Dosage: UNK
  325. TIOTROPIUM BROMIDE [Suspect]
     Active Substance: TIOTROPIUM BROMIDE
     Indication: Asthma
     Dosage: 1 DF, QD
  326. TIOTROPIUM BROMIDE [Suspect]
     Active Substance: TIOTROPIUM BROMIDE
     Route: 065
  327. TIOTROPIUM BROMIDE [Suspect]
     Active Substance: TIOTROPIUM BROMIDE
     Route: 065
  328. TIOTROPIUM BROMIDE [Suspect]
     Active Substance: TIOTROPIUM BROMIDE
     Route: 065
  329. TIOTROPIUM BROMIDE [Suspect]
     Active Substance: TIOTROPIUM BROMIDE
  330. TIOTROPIUM BROMIDE [Suspect]
     Active Substance: TIOTROPIUM BROMIDE
  331. TIOTROPIUM BROMIDE [Suspect]
     Active Substance: TIOTROPIUM BROMIDE
  332. TIOTROPIUM BROMIDE [Suspect]
     Active Substance: TIOTROPIUM BROMIDE
  333. TIOTROPIUM BROMIDE [Suspect]
     Active Substance: TIOTROPIUM BROMIDE
  334. AMLODIPINE [Suspect]
     Active Substance: AMLODIPINE BESYLATE
     Dosage: UNK
     Route: 065
  335. AMLODIPINE MALEATE [Suspect]
     Active Substance: AMLODIPINE MALEATE
     Indication: Product used for unknown indication
     Dosage: UNK
     Route: 065
  336. FINASTERIDE\TAMSULOSIN [Suspect]
     Active Substance: FINASTERIDE\TAMSULOSIN
     Dosage: UNK
  337. PREVNAR [Suspect]
     Active Substance: PNEUMOCOCCAL 7-VALENT CONJUGATE VACCINE (DIPHTHERIA CRM197 PROTEIN)
     Indication: Prophylaxis
     Dosage: UNK
  338. PREVNAR [Suspect]
     Active Substance: PNEUMOCOCCAL 7-VALENT CONJUGATE VACCINE (DIPHTHERIA CRM197 PROTEIN)
     Dosage: UNK
  339. PREVNAR [Suspect]
     Active Substance: PNEUMOCOCCAL 7-VALENT CONJUGATE VACCINE (DIPHTHERIA CRM197 PROTEIN)
     Dosage: SUSPENSION?INTRAMUSCULAR
     Route: 065
  340. PREVNAR [Suspect]
     Active Substance: PNEUMOCOCCAL 7-VALENT CONJUGATE VACCINE (DIPHTHERIA CRM197 PROTEIN)
     Dosage: SUSPENSION?INTRAMUSCULAR
     Route: 065
  341. PREVNAR [Suspect]
     Active Substance: PNEUMOCOCCAL 7-VALENT CONJUGATE VACCINE (DIPHTHERIA CRM197 PROTEIN)
     Dosage: SUSPENSION INTRAMUSCULAR
  342. ALVESCO [Suspect]
     Active Substance: CICLESONIDE
     Indication: Asthma
     Dosage: UNK
     Route: 065
  343. PREVNAR 13 [Suspect]
     Active Substance: STREPTOCOCCUS PNEUMONIAE TYPE 1 CAPSULAR POLYSACCHARIDE DIPHTHERIA CRM197 PROTEIN CONJUGATE ANTIGEN\
     Indication: Immunisation
     Dosage: UNK
     Route: 065
  344. PREVNAR 13 [Suspect]
     Active Substance: STREPTOCOCCUS PNEUMONIAE TYPE 1 CAPSULAR POLYSACCHARIDE DIPHTHERIA CRM197 PROTEIN CONJUGATE ANTIGEN\
     Dosage: UNK
     Route: 065
  345. PREVNAR 13 [Suspect]
     Active Substance: STREPTOCOCCUS PNEUMONIAE TYPE 1 CAPSULAR POLYSACCHARIDE DIPHTHERIA CRM197 PROTEIN CONJUGATE ANTIGEN\
     Dosage: UNK
     Route: 065
  346. PREVNAR 13 [Suspect]
     Active Substance: STREPTOCOCCUS PNEUMONIAE TYPE 1 CAPSULAR POLYSACCHARIDE DIPHTHERIA CRM197 PROTEIN CONJUGATE ANTIGEN\
     Dosage: UNK
     Route: 065
  347. FLOMAX [Suspect]
     Active Substance: TAMSULOSIN HYDROCHLORIDE
     Indication: Product used for unknown indication
     Dosage: UNK (SUSTAINED-RELEASE CAPSULE)
     Route: 065
  348. ROSUVASTATIN CALCIUM [Suspect]
     Active Substance: ROSUVASTATIN CALCIUM
     Dosage: UNK
     Route: 065
  349. ALBUTEROL SULFATE [Suspect]
     Active Substance: ALBUTEROL SULFATE
     Indication: Prophylaxis
     Dosage: UNK
     Route: 065
  350. SYMBICORT [Suspect]
     Active Substance: BUDESONIDE\FORMOTEROL FUMARATE DIHYDRATE
     Dosage: UNK
     Route: 065
  351. SYMBICORT [Suspect]
     Active Substance: BUDESONIDE\FORMOTEROL FUMARATE DIHYDRATE
     Dosage: UNK
     Route: 065
  352. LYRICA [Suspect]
     Active Substance: PREGABALIN
     Dosage: UNK
     Route: 065

REACTIONS (22)
  - Transient ischaemic attack [Unknown]
  - Malignant melanoma stage 0 [Unknown]
  - Congenital hiatus hernia [Unknown]
  - Chronic obstructive pulmonary disease [Unknown]
  - Gastrooesophageal reflux disease [Unknown]
  - Bronchiectasis [Unknown]
  - Breath sounds abnormal [Unknown]
  - Transient ischaemic attack [Unknown]
  - Loss of personal independence in daily activities [Unknown]
  - Full blood count abnormal [Unknown]
  - Asthma [Unknown]
  - Coronary artery disease [Unknown]
  - Productive cough [Unknown]
  - Micturition urgency [Unknown]
  - Benign prostatic hyperplasia [Unknown]
  - Hypertension [Unknown]
  - Hypercholesterolaemia [Unknown]
  - Dyspnoea [Unknown]
  - Dyspnoea exertional [Unknown]
  - Joint injury [Unknown]
  - Obstructive airways disorder [Unknown]
  - Therapeutic product effect incomplete [Unknown]
